FAERS Safety Report 7441094-9 (Version None)
Quarter: 2011Q2

REPORT INFORMATION
  Report Type: 
  Country: None (occurrence: None)
  Receive Date: 20110427
  Receipt Date: 20110329
  Transmission Date: 20111010
  Serious: Yes (Other)
  Sender: FDA-Public Use
  Company Number: US-BAYER-201022226NA

PATIENT
  Age: 65 Year
  Sex: Female
  Weight: 79.1 kg

DRUGS (34)
  1. MAGNEVIST [Suspect]
     Indication: NUCLEAR MAGNETIC RESONANCE IMAGING
  2. RENAGEL [Concomitant]
     Dosage: 800 MG TWICE WITH MEALS
  3. CARDIZEM CD [Concomitant]
  4. HYTRIN [Concomitant]
  5. SYNTHROID [Concomitant]
  6. ALLOPURINOL [Concomitant]
  7. SODIUM IODIDE I 131 [Concomitant]
  8. RENAL [VITAMINS NOS] [Concomitant]
  9. OPTIMARK [Suspect]
     Indication: NUCLEAR MAGNETIC RESONANCE IMAGING
  10. CELLCEPT [Concomitant]
     Dosage: 500 MG EVERY 6 HRS
  11. ASPIRIN [Concomitant]
  12. SODIUM BICARBONATE [Concomitant]
  13. GADOLINIUM IN UNSPECIFIED DRUG [Suspect]
     Indication: NUCLEAR MAGNETIC RESONANCE IMAGING
     Dates: start: 20060522, end: 20060522
  14. OPTIMARK [Suspect]
     Indication: ANGIOGRAM
  15. PROHANCE [Suspect]
     Indication: NUCLEAR MAGNETIC RESONANCE IMAGING
  16. NEPHROCAPS [Concomitant]
  17. SENSIPAR [Concomitant]
  18. COUMADIN [Concomitant]
  19. EPOGEN [Concomitant]
     Dosage: AT DIALYSIS
  20. MAGNEVIST [Suspect]
     Indication: ANGIOGRAM
  21. OMNISCAN [Suspect]
     Indication: NUCLEAR MAGNETIC RESONANCE IMAGING
  22. MULTIHANCE [Suspect]
     Indication: ANGIOGRAM
  23. MULTIHANCE [Suspect]
     Indication: NUCLEAR MAGNETIC RESONANCE IMAGING
  24. PREDNISONE [Concomitant]
     Dosage: 5 MG EVERY MORNING
     Route: 048
  25. LEVATOL [Concomitant]
  26. PROGRAF [Concomitant]
     Dosage: 1 MG EVERY 12 HRS
     Route: 048
  27. LIPITOR [Concomitant]
     Dosage: 10 MG QHS
     Route: 048
  28. PROTONIX [Concomitant]
  29. NEURONTIN [Concomitant]
  30. LABETALOL [Concomitant]
  31. OMNISCAN [Suspect]
     Indication: ANGIOGRAM
  32. PROHANCE [Suspect]
     Indication: ANGIOGRAM
  33. METOPROLOL [Concomitant]
  34. MIDODRINE HYDROCHLORIDE [Concomitant]
     Dosage: 1 HOUR PRIOR TO DIALYSIS

REACTIONS (9)
  - SKIN HYPERPIGMENTATION [None]
  - MELANOCYTIC NAEVUS [None]
  - SKIN TIGHTNESS [None]
  - PAIN [None]
  - SKIN HYPERTROPHY [None]
  - SKIN EXFOLIATION [None]
  - NEPHROGENIC SYSTEMIC FIBROSIS [None]
  - SKIN INDURATION [None]
  - OEDEMA PERIPHERAL [None]
